FAERS Safety Report 21552482 (Version 4)
Quarter: 2022Q4

REPORT INFORMATION
  Report Type: Report from Study
  Country: GR (occurrence: GR)
  Receive Date: 20221104
  Receipt Date: 20221114
  Transmission Date: 20230113
  Serious: Yes (Hospitalization, Other)
  Sender: FDA-Public Use
  Company Number: GR-ABBVIE-4184022

PATIENT
  Age: 41 Year
  Sex: Female
  Weight: 108 kg

DRUGS (2)
  1. HUMIRA [Suspect]
     Active Substance: ADALIMUMAB
     Indication: Colitis ulcerative
     Route: 058
     Dates: start: 201710, end: 20190716
  2. HUMIRA [Suspect]
     Active Substance: ADALIMUMAB
     Route: 058
     Dates: start: 20191230, end: 20221107

REACTIONS (1)
  - Papillary thyroid cancer [Not Recovered/Not Resolved]

NARRATIVE: CASE EVENT DATE: 20221031
